FAERS Safety Report 13728065 (Version 1)
Quarter: 2017Q3

REPORT INFORMATION
  Report Type: Spontaneous
  Country: US (occurrence: US)
  Receive Date: 20170707
  Receipt Date: 20170707
  Transmission Date: 20171127
  Serious: No
  Sender: FDA-Public Use
  Company Number: US-SUN PHARMACEUTICAL INDUSTRIES LTD-2016US-127937

PATIENT
  Age: 15 Year
  Sex: Male

DRUGS (1)
  1. ABSORICA [Suspect]
     Active Substance: ISOTRETINOIN
     Indication: PRODUCT USED FOR UNKNOWN INDICATION
     Dosage: UNK
     Route: 065
     Dates: start: 20161004

REACTIONS (4)
  - Inappropriate schedule of drug administration [Unknown]
  - Platelet count increased [Unknown]
  - Globulins increased [Unknown]
  - Protein total increased [Unknown]

NARRATIVE: CASE EVENT DATE: 2016
